FAERS Safety Report 19810047 (Version 1)
Quarter: 2021Q3

REPORT INFORMATION
  Report Type: Report from Study
  Country: None (occurrence: CA)
  Receive Date: 20210909
  Receipt Date: 20210909
  Transmission Date: 20211014
  Serious: Yes (Other)
  Sender: FDA-Public Use
  Company Number: CA-ABBVIE-21K-028-3979069-00

PATIENT
  Age: 61 Year
  Sex: Female

DRUGS (4)
  1. COVID?19 VACCINE NOS. [Suspect]
     Active Substance: COVID-19 VACCINE NOS
     Route: 030
     Dates: start: 20210708, end: 20210708
  2. HUMIRA [Suspect]
     Active Substance: ADALIMUMAB
     Indication: PSORIASIS
     Route: 058
     Dates: start: 20131029
  3. COVID?19 VACCINE NOS. [Suspect]
     Active Substance: COVID-19 VACCINE NOS
     Indication: COVID-19 PROPHYLAXIS
     Route: 030
     Dates: start: 2021, end: 2021
  4. GABAPENTIN. [Concomitant]
     Active Substance: GABAPENTIN
     Indication: FIBROMYALGIA

REACTIONS (15)
  - Vaccination complication [Unknown]
  - Hypoaesthesia [Recovered/Resolved]
  - Blood glucose increased [Recovering/Resolving]
  - Fall [Unknown]
  - Dehydration [Recovering/Resolving]
  - Fatigue [Unknown]
  - Hypoaesthesia oral [Recovered/Resolved]
  - Back pain [Unknown]
  - Syncope [Recovered/Resolved]
  - Blood pressure increased [Recovered/Resolved]
  - Panic attack [Recovering/Resolving]
  - Pyrexia [Unknown]
  - Toothache [Not Recovered/Not Resolved]
  - Infection [Recovered/Resolved]
  - Loss of consciousness [Recovered/Resolved]

NARRATIVE: CASE EVENT DATE: 2021
